FAERS Safety Report 19770003 (Version 1)
Quarter: 2021Q3

REPORT INFORMATION
  Report Type: Spontaneous
  Country: NL (occurrence: NL)
  Receive Date: 20210831
  Receipt Date: 20210831
  Transmission Date: 20211014
  Serious: Yes (Other)
  Sender: FDA-Public Use
  Company Number: NL-AUROBINDO-AUR-APL-2021-037019

PATIENT
  Sex: Male
  Weight: 89.8 kg

DRUGS (2)
  1. PARACETAMOL [Concomitant]
     Active Substance: ACETAMINOPHEN
     Indication: PRODUCT USED FOR UNKNOWN INDICATION
     Dosage: 500 MILLIGRAM, UNK
     Route: 065
  2. OXYCODON 10 MG MODIFIED RELEASE TABLET [Suspect]
     Active Substance: OXYCODONE HYDROCHLORIDE
     Indication: PAIN
     Dosage: COMBINATIE VAN 10MG EN 5MG, 120MG IN TOTAAL, 3 DAGEN ACHTER ELKAAR.
     Route: 065
     Dates: start: 2018

REACTIONS (2)
  - Hallucination, auditory [Recovering/Resolving]
  - Hallucination, visual [Recovering/Resolving]
